FAERS Safety Report 5800250-3 (Version None)
Quarter: 2008Q3

REPORT INFORMATION
  Report Type: 
  Country: None (occurrence: None)
  Receive Date: 20080703
  Receipt Date: 20080623
  Transmission Date: 20090109
  Serious: Yes (Other)
  Sender: FDA-Public Use
  Company Number: PHEH2008US05694

PATIENT

DRUGS (1)
  1. NEORAL [Suspect]

REACTIONS (3)
  - CONGESTIVE CARDIOMYOPATHY [None]
  - PULMONARY EMBOLISM [None]
  - THROMBOPHLEBITIS [None]
